FAERS Safety Report 24761598 (Version 2)
Quarter: 2025Q1

REPORT INFORMATION
  Report Type: Spontaneous
  Country: CA (occurrence: CA)
  Receive Date: 20241220
  Receipt Date: 20250310
  Transmission Date: 20250408
  Serious: Yes (Hospitalization)
  Sender: PFIZER
  Company Number: CA-PFIZER INC-202400328793

PATIENT
  Age: 74 Year
  Sex: Female

DRUGS (3)
  1. INFLIXIMAB [Suspect]
     Active Substance: INFLIXIMAB
  2. OPDIVO [Suspect]
     Active Substance: NIVOLUMAB
  3. YERVOY [Suspect]
     Active Substance: IPILIMUMAB

REACTIONS (1)
  - Colitis [Unknown]
